FAERS Safety Report 6982936-0 (Version None)
Quarter: 2010Q3

REPORT INFORMATION
  Report Type: 
  Country: None (occurrence: None)
  Receive Date: 20100914
  Receipt Date: 20100526
  Transmission Date: 20110219
  Serious: Yes (Other)
  Sender: FDA-Public Use
  Company Number: US-PFIZER INC-2010045447

PATIENT
  Sex: Female
  Weight: 80.272 kg

DRUGS (13)
  1. LYRICA [Suspect]
     Indication: FIBROMYALGIA
     Dosage: 150 MG, 3X/DAY
     Route: 048
     Dates: start: 20070301, end: 20100422
  2. CYMBALTA [Concomitant]
     Indication: BONE PAIN
     Dosage: UNK
  3. PERCOCET [Concomitant]
     Indication: PAIN
     Dosage: UNK
  4. LUNESTA [Concomitant]
     Dosage: UNK
  5. BENICAR [Concomitant]
     Dosage: UNK
  6. VITAMIN B6 [Concomitant]
     Dosage: UNK
  7. FOLIC ACID [Concomitant]
     Dosage: UNK
  8. ZANAFLEX [Concomitant]
     Dosage: UNK
  9. OXYCONTIN [Concomitant]
  10. CELEBREX [Concomitant]
  11. POTASSIUM CHLORIDE [Concomitant]
  12. PROVIGIL [Concomitant]
  13. LIDODERM [Concomitant]

REACTIONS (7)
  - DYSURIA [None]
  - HAEMOGLOBIN DECREASED [None]
  - PAIN [None]
  - PLATELET COUNT DECREASED [None]
  - RED BLOOD CELL COUNT DECREASED [None]
  - WEIGHT INCREASED [None]
  - WHITE BLOOD CELL COUNT INCREASED [None]
